FAERS Safety Report 12245895 (Version 4)
Quarter: 2016Q4

REPORT INFORMATION
  Report Type: Report from Study
  Country: US (occurrence: US)
  Receive Date: 20160407
  Receipt Date: 20161028
  Transmission Date: 20170207
  Serious: No
  Sender: FDA-Public Use
  Company Number: PHEH2016US008455

PATIENT
  Age: 49 Year
  Sex: Female

DRUGS (9)
  1. ENTRESTO [Suspect]
     Active Substance: SACUBITRIL\VALSARTAN
     Dosage: 200 MG, QD (HALF IN THE AM AND HALF IN THE PM)
     Route: 048
  2. LIPITOR [Concomitant]
     Active Substance: ATORVASTATIN CALCIUM
     Indication: PRODUCT USED FOR UNKNOWN INDICATION
     Dosage: 10 MG, UNK
     Route: 065
  3. METOPROLOL. [Concomitant]
     Active Substance: METOPROLOL
     Indication: PRODUCT USED FOR UNKNOWN INDICATION
     Dosage: 100 MG, UNK
     Route: 065
  4. PRILOSEC [Concomitant]
     Active Substance: OMEPRAZOLE MAGNESIUM
     Indication: PRODUCT USED FOR UNKNOWN INDICATION
     Dosage: 20 MG, UNK
     Route: 065
  5. ENTRESTO [Suspect]
     Active Substance: SACUBITRIL\VALSARTAN
     Indication: CARDIAC FAILURE
     Dosage: 100 (49/51) MG, BID
     Route: 048
     Dates: start: 20160402
  6. ENTRESTO [Suspect]
     Active Substance: SACUBITRIL\VALSARTAN
     Dosage: 200 MG (97/103), BID
     Route: 048
     Dates: start: 201605
  7. LASIX [Suspect]
     Active Substance: FUROSEMIDE
     Indication: PRODUCT USED FOR UNKNOWN INDICATION
     Dosage: 20 MG, PRN (DAILY)
     Route: 065
  8. ESTROVEN [Concomitant]
     Active Substance: DIETARY SUPPLEMENT
     Indication: MENOPAUSE
     Route: 065
  9. ENTRESTO [Suspect]
     Active Substance: SACUBITRIL\VALSARTAN
     Dosage: 200 (97/103) MG, BID
     Route: 048

REACTIONS (7)
  - Visual impairment [Recovered/Resolved]
  - Heart rate irregular [Unknown]
  - Fatigue [Unknown]
  - Dizziness [Recovered/Resolved]
  - Dehydration [Unknown]
  - Blood pressure fluctuation [Unknown]
  - Weight decreased [Unknown]

NARRATIVE: CASE EVENT DATE: 20160421
